FAERS Safety Report 9145781 (Version 1)
Quarter: 2013Q1

REPORT INFORMATION
  Report Type: Spontaneous
  Country: US (occurrence: None)
  Receive Date: 20130206
  Receipt Date: 20130206
  Transmission Date: 20140127
  Serious: Yes (Death, Hospitalization)
  Sender: FDA-Public Use
  Company Number: NSR_00889_2013

PATIENT
  Age: 49 Year
  Sex: Male

DRUGS (7)
  1. VENLAFAXINE [Suspect]
     Indication: PRODUCT USED FOR UNKNOWN INDICATION
     Dosage: ([UP TO 400 PILLS, NOT PRESCRIBED AMOUNT] ORAL), (DF)
     Dates: start: 2011, end: 2011
  2. SIMVASTATIN [Concomitant]
  3. LITHIUM [Concomitant]
  4. RISPERIDONE [Concomitant]
  5. MIRTAZAPINE [Concomitant]
  6. TRAZODONE [Concomitant]
  7. LOSARTAN [Concomitant]

REACTIONS (22)
  - Poisoning [None]
  - Completed suicide [None]
  - Lethargy [None]
  - Somnolence [None]
  - Sinus tachycardia [None]
  - Convulsion [None]
  - Hypotension [None]
  - Ileus [None]
  - Transaminases increased [None]
  - Ventricular arrhythmia [None]
  - Cardiogenic shock [None]
  - Toxicity to various agents [None]
  - White blood cell count increased [None]
  - Mental status changes [None]
  - Blood glucose increased [None]
  - Haemodynamic instability [None]
  - Blood pH decreased [None]
  - Blood pH increased [None]
  - Electrocardiogram QRS complex prolonged [None]
  - Blood sodium increased [None]
  - Platelet count decreased [None]
  - Incorrect dose administered [None]
